FAERS Safety Report 21494958 (Version 5)
Quarter: 2022Q4

REPORT INFORMATION
  Report Type: Spontaneous
  Country: US (occurrence: US)
  Receive Date: 20221022
  Receipt Date: 20221118
  Transmission Date: 20230112
  Serious: Yes (Hospitalization, Other)
  Sender: FDA-Public Use
  Company Number: US-UNITED THERAPEUTICS-UNT-2022-021015

PATIENT
  Sex: Male
  Weight: 72.562 kg

DRUGS (8)
  1. TYVASO [Suspect]
     Active Substance: TREPROSTINIL
     Indication: Pulmonary arterial hypertension
     Dosage: UNK
     Dates: start: 20220907
  2. TYVASO [Suspect]
     Active Substance: TREPROSTINIL
     Dosage: 18 ?G, QID
     Dates: start: 202209, end: 202209
  3. TYVASO [Suspect]
     Active Substance: TREPROSTINIL
     Dosage: 24 ?G, QID
     Dates: start: 202209, end: 20220922
  4. TYVASO [Suspect]
     Active Substance: TREPROSTINIL
     Dosage: 30 ?G, QID
     Dates: start: 20220922
  5. TYVASO [Suspect]
     Active Substance: TREPROSTINIL
     Dosage: 42 ?G, QID
     Dates: start: 20221005, end: 2022
  6. TYVASO [Suspect]
     Active Substance: TREPROSTINIL
     Dosage: 60 ?G, QID
     Dates: start: 2022
  7. TYVASO [Suspect]
     Active Substance: TREPROSTINIL
     Dosage: 24 ?G, QID
     Dates: start: 2022
  8. TYVASO [Suspect]
     Active Substance: TREPROSTINIL
     Dosage: 60 ?G, QID
     Dates: start: 2022

REACTIONS (25)
  - Oedema peripheral [Unknown]
  - Hypotension [Unknown]
  - Thrombosis [Unknown]
  - Confusional state [Unknown]
  - Dizziness [Unknown]
  - Oxygen consumption increased [Unknown]
  - Nausea [Unknown]
  - Flatulence [Unknown]
  - Chest discomfort [Unknown]
  - Throat clearing [Unknown]
  - Oxygen saturation decreased [Unknown]
  - Abdominal discomfort [Unknown]
  - Vomiting [Recovered/Resolved]
  - Throat irritation [Unknown]
  - Fluid retention [Unknown]
  - Asthenia [Unknown]
  - Chest pain [Unknown]
  - Back pain [Unknown]
  - Cough [Recovered/Resolved]
  - Fatigue [Unknown]
  - Weight decreased [Unknown]
  - Joint swelling [Unknown]
  - Blister [Unknown]
  - Vascular injury [Unknown]
  - Wrong dose [Unknown]

NARRATIVE: CASE EVENT DATE: 20220101
